FAERS Safety Report 21937822 (Version 1)
Quarter: 2023Q1

REPORT INFORMATION
  Report Type: Report from Study
  Country: US (occurrence: US)
  Receive Date: 20230201
  Receipt Date: 20230201
  Transmission Date: 20230418
  Serious: Yes (Death)
  Sender: FDA-Public Use
  Company Number: MIQ-01182023-1837(V1)

PATIENT
  Age: 62 Year
  Sex: Male

DRUGS (1)
  1. PEMFEXY [Suspect]
     Active Substance: PEMETREXED MONOHYDRATE
     Indication: Product used for unknown indication
     Dosage: UNK
     Route: 042

REACTIONS (1)
  - Death [Fatal]

NARRATIVE: CASE EVENT DATE: 20221109
